FAERS Safety Report 7957824-3 (Version None)
Quarter: 2011Q4

REPORT INFORMATION
  Report Type: 
  Country: None (occurrence: None)
  Receive Date: 20111205
  Receipt Date: 20111201
  Transmission Date: 20120403
  Serious: Yes (Death)
  Sender: FDA-Public Use
  Company Number: DE-JNJFOC-20111200202

PATIENT
  Age: 56 Year
  Sex: Female
  Weight: 111 kg

DRUGS (2)
  1. DOXORUBICIN HCL [Suspect]
     Indication: OVARIAN CANCER
     Route: 042
     Dates: start: 20110408, end: 20110520
  2. TRABECTEDIN [Suspect]
     Indication: OVARIAN CANCER
     Route: 042
     Dates: start: 20110408, end: 20110520

REACTIONS (3)
  - PANCYTOPENIA [None]
  - RENAL FAILURE [None]
  - GENERAL PHYSICAL HEALTH DETERIORATION [None]
